FAERS Safety Report 5794754-X (Version None)
Quarter: 2008Q2

REPORT INFORMATION
  Report Type: 
  Country: None (occurrence: None)
  Receive Date: 20080630
  Receipt Date: 20080618
  Transmission Date: 20081010
  Serious: Yes (Hospitalization)
  Sender: FDA-Public Use
  Company Number: BE-AMGEN-UK272167

PATIENT
  Sex: Male

DRUGS (18)
  1. PANITUMUMAB [Suspect]
     Indication: SQUAMOUS CELL CARCINOMA
     Route: 042
     Dates: start: 20080219, end: 20080314
  2. ISOBETADINE [Concomitant]
     Route: 061
     Dates: start: 20080418
  3. FRAXIPARINE [Concomitant]
     Route: 058
     Dates: start: 20080108
  4. LORAMET [Concomitant]
     Route: 048
     Dates: start: 20080202
  5. FRAXIPARINE [Concomitant]
     Route: 058
     Dates: start: 20080108
  6. CORSODYL [Concomitant]
     Route: 048
     Dates: start: 20080202
  7. DAFALGAN [Concomitant]
     Route: 048
     Dates: start: 20080202
  8. THIAMINE [Concomitant]
     Route: 042
     Dates: start: 20080322, end: 20080323
  9. THIAMINE [Concomitant]
     Route: 042
     Dates: start: 20080403, end: 20080407
  10. ZANTAC [Concomitant]
     Route: 042
     Dates: start: 20080322, end: 20080407
  11. SERTRALINE [Concomitant]
     Route: 048
     Dates: start: 20080324, end: 20080330
  12. FLAGYL [Concomitant]
     Route: 048
     Dates: start: 20080225, end: 20080407
  13. MOTILIUM [Concomitant]
     Route: 048
     Dates: start: 20080319, end: 20080324
  14. LITICAN [Concomitant]
     Route: 042
     Dates: start: 20080320, end: 20080322
  15. PRIMPERAN TAB [Concomitant]
     Route: 042
     Dates: start: 20080325, end: 20080327
  16. CISPLATIN [Concomitant]
     Route: 042
     Dates: start: 20080409, end: 20080409
  17. HALDOL [Concomitant]
     Route: 042
     Dates: start: 20080403, end: 20080407
  18. KCL-RETARD [Concomitant]
     Route: 042
     Dates: start: 20080321, end: 20080407

REACTIONS (6)
  - DIARRHOEA [None]
  - FEBRILE NEUTROPENIA [None]
  - GENERAL PHYSICAL HEALTH DETERIORATION [None]
  - SEPSIS [None]
  - SEPTIC SHOCK [None]
  - THROMBOCYTOPENIA [None]
